FAERS Safety Report 25537259 (Version 1)
Quarter: 2025Q3

REPORT INFORMATION
  Report Type: Spontaneous
  Country: US (occurrence: US)
  Receive Date: 20250710
  Receipt Date: 20250710
  Transmission Date: 20251020
  Serious: No
  Sender: MERCK SHARP & DOHME LLC
  Company Number: US-009507513-2303023

PATIENT
  Sex: Female

DRUGS (3)
  1. STERILE DILUENT (WATER) [Suspect]
     Active Substance: WATER
  2. VARIVAX [Concomitant]
     Active Substance: VARICELLA-ZOSTER VIRUS STRAIN OKA/MERCK LIVE ANTIGEN
  3. VARIVAX [Concomitant]
     Active Substance: VARICELLA-ZOSTER VIRUS STRAIN OKA/MERCK LIVE ANTIGEN

REACTIONS (4)
  - Accidental exposure to product [Unknown]
  - Syringe issue [Unknown]
  - Occupational exposure to product [Unknown]
  - No adverse event [Unknown]
